FAERS Safety Report 8539278-1 (Version None)
Quarter: 2012Q3

REPORT INFORMATION
  Report Type: 
  Country: None (occurrence: None)
  Receive Date: 20120726
  Receipt Date: 20120719
  Transmission Date: 20120928
  Serious: Yes (Other)
  Sender: FDA-Public Use
  Company Number: IE-PFIZER INC-2012175810

PATIENT
  Age: 25 Year
  Sex: Male

DRUGS (2)
  1. MIRTAZAPINE [Concomitant]
  2. LYRICA [Suspect]
     Dosage: 300 MG, 2X/DAY

REACTIONS (1)
  - DRUG DEPENDENCE [None]
